FAERS Safety Report 6184740-2 (Version None)
Quarter: 2009Q2

REPORT INFORMATION
  Report Type: 
  Country: None (occurrence: None)
  Receive Date: 20090508
  Receipt Date: 20090427
  Transmission Date: 20091009
  Serious: Yes (Hospitalization)
  Sender: FDA-Public Use
  Company Number: DE-PFIZER INC-2009197324

PATIENT
  Age: 43 Year

DRUGS (4)
  1. LYRICA [Suspect]
     Indication: MUSCULOSKELETAL PAIN
     Dosage: DAILY
     Route: 048
     Dates: start: 20090407, end: 20090407
  2. MARCUMAR [Concomitant]
  3. PRAVA [Concomitant]
  4. OLMESARTAN MEDOXOMIL [Concomitant]

REACTIONS (2)
  - FALL [None]
  - LOSS OF CONSCIOUSNESS [None]
